FAERS Safety Report 7673230-3 (Version None)
Quarter: 2011Q3

REPORT INFORMATION
  Report Type: 
  Country: None (occurrence: None)
  Receive Date: 20110810
  Receipt Date: 20110803
  Transmission Date: 20111222
  Serious: Yes (Hospitalization)
  Sender: FDA-Public Use
  Company Number: JP-PFIZER INC-2011178449

PATIENT
  Age: 71 Year
  Sex: Female

DRUGS (10)
  1. ORENCIA [Suspect]
     Indication: RHEUMATOID ARTHRITIS
     Dosage: 500 MG ONCE WEEKLY
     Route: 042
     Dates: start: 20110118
  2. AZULFIDINE [Suspect]
  3. MAGNESIUM OXIDE [Concomitant]
  4. KENACORT-A OPHTHALMIC OINTMENT [Suspect]
     Indication: RHEUMATOID ARTHRITIS
     Dosage: 40 MG, AS NEEDED
     Route: 030
  5. CINAL [Concomitant]
  6. FOLIC ACID [Concomitant]
  7. KETOPROFEN [Concomitant]
  8. METHYLPREDNISOLONE [Suspect]
     Dosage: 1 MG, 1 DAY
     Route: 048
  9. FAMOTIDINE [Concomitant]
  10. METHOTREXATE SODIUM [Suspect]
     Dosage: 10 MG, WEEKLY
     Route: 048
     Dates: start: 20101026

REACTIONS (1)
  - PYELONEPHRITIS ACUTE [None]
